FAERS Safety Report 23428500 (Version 3)
Quarter: 2024Q1

REPORT INFORMATION
  Report Type: Spontaneous
  Country: JP (occurrence: JP)
  Receive Date: 20240122
  Receipt Date: 20240321
  Transmission Date: 20240409
  Serious: Yes (Death, Other)
  Sender: FDA-Public Use
  Company Number: JP-OTSUKA-2023_033803AA

PATIENT
  Age: 70 Year
  Sex: Male

DRUGS (2)
  1. ABILIFY [Suspect]
     Active Substance: ARIPIPRAZOLE
     Indication: Delirium
     Dosage: 3MG/DAY
     Route: 048
     Dates: start: 20231221, end: 20231228
  2. REXULTI [Suspect]
     Active Substance: BREXPIPRAZOLE
     Indication: Delirium
     Dosage: 1 MG
     Route: 048
     Dates: start: 20231229

REACTIONS (3)
  - Liver function test increased [Unknown]
  - Small cell lung cancer extensive stage [Fatal]
  - Product use in unapproved indication [Unknown]

NARRATIVE: CASE EVENT DATE: 20231221
